FAERS Safety Report 25711319 (Version 1)
Quarter: 2025Q3

REPORT INFORMATION
  Report Type: Spontaneous
  Country: US (occurrence: US)
  Receive Date: 20250821
  Receipt Date: 20250821
  Transmission Date: 20251020
  Serious: No
  Sender: SANOFI AVENTIS
  Company Number: US-SA-2025SA248303

PATIENT
  Sex: Female

DRUGS (16)
  1. DUPIXENT [Suspect]
     Active Substance: DUPILUMAB
     Indication: Asthma
     Dosage: 300 MG, QOW
     Route: 058
  2. ALBUTEROL SULFATE [Concomitant]
     Active Substance: ALBUTEROL SULFATE
  3. ARFORMOTEROL [Concomitant]
     Active Substance: ARFORMOTEROL
  4. AZITHROMYCIN [Concomitant]
     Active Substance: AZITHROMYCIN
  5. BACLOFEN [Concomitant]
     Active Substance: BACLOFEN
  6. BUDESONIDE [Concomitant]
     Active Substance: BUDESONIDE
  7. CARVEDILOL [Concomitant]
     Active Substance: CARVEDILOL
  8. DOVATO [Concomitant]
     Active Substance: DOLUTEGRAVIR SODIUM\LAMIVUDINE
  9. LORAZEPAM [Concomitant]
     Active Substance: LORAZEPAM
  10. XARELTO [Concomitant]
     Active Substance: RIVAROXABAN
  11. OXYCODONE [Concomitant]
     Active Substance: OXYCODONE
  12. NIFEDIPINE [Concomitant]
     Active Substance: NIFEDIPINE
  13. TRELEGY ELLIPTA [Concomitant]
     Active Substance: FLUTICASONE FUROATE\UMECLIDINIUM BROMIDE\VILANTEROL TRIFENATATE
  14. FLUTICASONE [Concomitant]
     Active Substance: FLUTICASONE
  15. METHYLPREDNIS [Concomitant]
  16. MORPHINE SULFATE [Concomitant]
     Active Substance: MORPHINE SULFATE

REACTIONS (1)
  - Lacrimation increased [Not Recovered/Not Resolved]
